FAERS Safety Report 5127528-3 (Version None)
Quarter: 2006Q4

REPORT INFORMATION
  Report Type: 
  Country: None (occurrence: None)
  Receive Date: 20061016
  Receipt Date: 20061002
  Transmission Date: 20070319
  Serious: Yes (Death, Other)
  Sender: FDA-Public Use
  Company Number: US-JNJFOC-20061000808

PATIENT
  Sex: Male
  Weight: 90.72 kg

DRUGS (6)
  1. REMICADE [Suspect]
     Route: 042
  2. REMICADE [Suspect]
     Indication: RHEUMATOID ARTHRITIS
     Route: 042
  3. NABUMETONE [Concomitant]
  4. METHOTREXATE [Concomitant]
     Route: 048
  5. CELEBREX [Concomitant]
  6. OXYCODONE HCL [Concomitant]

REACTIONS (2)
  - B-CELL LYMPHOMA [None]
  - DEATH [None]
